FAERS Safety Report 8044320-0 (Version None)
Quarter: 2012Q1

REPORT INFORMATION
  Report Type: 
  Country: None (occurrence: None)
  Receive Date: 20120111
  Receipt Date: 20120111
  Transmission Date: 20120608
  Serious: Yes (Hospitalization, Other)
  Sender: FDA-Public Use
  Company Number: None

PATIENT
  Age: 76 Year
  Sex: Male

DRUGS (8)
  1. WARFARIN SODIUM [Concomitant]
  2. REVLIMID [Suspect]
     Indication: MYELODYSPLASTIC SYNDROME
     Dosage: REVLIMID 10 MG DAILY ORALLY
     Route: 048
     Dates: start: 20110801, end: 20111201
  3. FUROSEMIDE [Concomitant]
  4. LOVASTATIN [Concomitant]
  5. METOPROLOL TARTRATE [Concomitant]
  6. ASPIRIN [Concomitant]
  7. FLUTICASONE PROPIONATE [Concomitant]
  8. POTASSIUM CHLORIDE [Concomitant]

REACTIONS (5)
  - NEUTROPHIL COUNT DECREASED [None]
  - ATRIAL FIBRILLATION [None]
  - ASTHENIA [None]
  - PNEUMONIA [None]
  - HYPERHIDROSIS [None]
